FAERS Safety Report 14078625 (Version 3)
Quarter: 2018Q1

REPORT INFORMATION
  Report Type: Report from Study
  Country: None (occurrence: US)
  Receive Date: 20171012
  Receipt Date: 20180122
  Transmission Date: 20180508
  Serious: Yes (Other)
  Sender: FDA-Public Use
  Company Number: US-ABBVIE-17K-163-1974511-00

PATIENT
  Sex: Female

DRUGS (3)
  1. HUMIRA [Suspect]
     Active Substance: ADALIMUMAB
     Indication: PSORIASIS
     Route: 058
     Dates: end: 201703
  2. HUMIRA [Suspect]
     Active Substance: ADALIMUMAB
     Route: 058
     Dates: start: 2017, end: 201709
  3. HUMIRA [Suspect]
     Active Substance: ADALIMUMAB
     Route: 058
     Dates: start: 20180102

REACTIONS (17)
  - Frequent bowel movements [Unknown]
  - Dry eye [Unknown]
  - Oral herpes [Unknown]
  - Drug ineffective [Unknown]
  - Large intestine polyp [Unknown]
  - Fatigue [Unknown]
  - Gastrooesophageal reflux disease [Unknown]
  - Skin fissures [Not Recovered/Not Resolved]
  - Coeliac disease [Unknown]
  - Contusion [Unknown]
  - Dermatitis [Unknown]
  - Psoriasis [Recovering/Resolving]
  - Skin haemorrhage [Unknown]
  - Skin haemorrhage [Not Recovered/Not Resolved]
  - Acne [Unknown]
  - Insomnia [Unknown]
  - Swelling [Unknown]
